FAERS Safety Report 25324197 (Version 2)
Quarter: 2025Q4

REPORT INFORMATION
  Report Type: Report from Study
  Country: US (occurrence: US)
  Receive Date: 20250516
  Receipt Date: 20251128
  Transmission Date: 20260118
  Serious: Yes (Hospitalization)
  Sender: Pyros Pharmaceuticals
  Company Number: US-PYROS PHARMACEUTICALS, INC-20250500828

PATIENT

DRUGS (2)
  1. VIGAFYDE [Suspect]
     Active Substance: VIGABATRIN
     Indication: Infantile spasms
     Dosage: 1150 MG, (11.5 ML ) BID
     Route: 048
     Dates: start: 20250329, end: 2025
  2. VIGAFYDE [Suspect]
     Active Substance: VIGABATRIN
     Dosage: 1150 MG, (11.5 ML) BID
     Route: 048
     Dates: start: 2025

REACTIONS (2)
  - Gastrointestinal disorder [Not Recovered/Not Resolved]
  - Vomiting [Not Recovered/Not Resolved]

NARRATIVE: CASE EVENT DATE: 20250101
